FAERS Safety Report 8492749-9 (Version None)
Quarter: 2012Q3

REPORT INFORMATION
  Report Type: 
  Country: None (occurrence: None)
  Receive Date: 20120706
  Receipt Date: 20120703
  Transmission Date: 20120928
  Serious: Yes (Life-Threatening, Hospitalization, Other)
  Sender: FDA-Public Use
  Company Number: TH-ROCHE-1061925

PATIENT
  Sex: Female
  Weight: 53 kg

DRUGS (7)
  1. ACTEMRA [Suspect]
     Route: 042
     Dates: start: 20111010
  2. ACTEMRA [Suspect]
     Route: 042
     Dates: start: 20111107
  3. ACTEMRA [Suspect]
     Route: 042
     Dates: start: 20110712
  4. ACTEMRA [Suspect]
     Indication: RHEUMATOID ARTHRITIS
     Dosage: LAST DOSE PRIOR TO THE EVENT: 06/DEC/2011
     Route: 042
     Dates: start: 20091224
  5. PLACEBO [Suspect]
     Indication: RHEUMATOID ARTHRITIS
  6. ACTEMRA [Suspect]
     Route: 042
     Dates: start: 20111206
  7. AMLODIPINE [Concomitant]
     Indication: HYPERTENSION

REACTIONS (5)
  - PNEUMONIA [None]
  - ATRIAL FIBRILLATION [None]
  - ISCHAEMIC CEREBRAL INFARCTION [None]
  - ACUTE MYOCARDIAL INFARCTION [None]
  - ISCHAEMIC STROKE [None]
